FAERS Safety Report 14552114 (Version 2)
Quarter: 2018Q1

REPORT INFORMATION
  Report Type: Report from Study
  Country: None (occurrence: US)
  Receive Date: 20180220
  Receipt Date: 20180302
  Transmission Date: 20180509
  Serious: Yes (Other)
  Sender: FDA-Public Use
  Company Number: US-ABBVIE-18K-163-2262091-00

PATIENT
  Age: 66 Year
  Sex: Female

DRUGS (5)
  1. BUSPAR [Concomitant]
     Active Substance: BUSPIRONE HYDROCHLORIDE
     Indication: DEPRESSION
  2. CIMZIA [Suspect]
     Active Substance: CERTOLIZUMAB PEGOL
     Indication: PSORIATIC ARTHROPATHY
     Route: 050
     Dates: start: 20170906, end: 20170906
  3. PROAIR HFA [Concomitant]
     Active Substance: ALBUTEROL SULFATE
     Indication: ASTHMA
  4. BUSPAR [Concomitant]
     Active Substance: BUSPIRONE HYDROCHLORIDE
     Indication: ANXIETY
  5. HUMIRA [Suspect]
     Active Substance: ADALIMUMAB
     Indication: PRODUCT USED FOR UNKNOWN INDICATION
     Route: 058
     Dates: start: 2011, end: 201707

REACTIONS (15)
  - Adverse drug reaction [Unknown]
  - Cough [Recovering/Resolving]
  - Swelling [Recovered/Resolved]
  - Coronary artery occlusion [Not Recovered/Not Resolved]
  - Scab [Not Recovered/Not Resolved]
  - Arthralgia [Unknown]
  - Injection site erythema [Recovered/Resolved]
  - Heart rate irregular [Recovered/Resolved]
  - Pneumonia [Recovering/Resolving]
  - Psoriasis [Recovering/Resolving]
  - Paralysis [Recovered/Resolved]
  - Inflammatory marker increased [Recovered/Resolved]
  - Gait disturbance [Recovered/Resolved]
  - Blood cholesterol increased [Not Recovered/Not Resolved]
  - Pain [Not Recovered/Not Resolved]

NARRATIVE: CASE EVENT DATE: 2016
